FAERS Safety Report 5009229-5 (Version None)
Quarter: 2006Q2

REPORT INFORMATION
  Report Type: 
  Country: None (occurrence: None)
  Receive Date: 20060519
  Receipt Date: 20060505
  Transmission Date: 20061013
  Serious: Yes (Hospitalization)
  Sender: FDA-Public Use
  Company Number: 2006RR-02239

PATIENT
  Age: 72 Year
  Sex: Female

DRUGS (3)
  1. IBUPROFEN [Suspect]
  2. CLEXANE (ENOXAPARIN) [Suspect]
     Indication: THROMBOSIS PROPHYLAXIS
  3. MORPHINE [Concomitant]

REACTIONS (2)
  - GASTRIC ULCER [None]
  - UPPER GASTROINTESTINAL HAEMORRHAGE [None]
